FAERS Safety Report 9726372 (Version 1)
Quarter: 2013Q4

REPORT INFORMATION
  Report Type: Spontaneous
  Country: US (occurrence: US)
  Receive Date: 20131203
  Receipt Date: 20131203
  Transmission Date: 20140711
  Serious: No
  Sender: FDA-Public Use
  Company Number: US-009507513-1312USA000667

PATIENT
  Age: 45 Year
  Sex: Female

DRUGS (1)
  1. CLARITIN-D-24 [Suspect]
     Indication: RHINORRHOEA
     Dosage: UNK, UNKNOWN
     Route: 048

REACTIONS (4)
  - Dry throat [Unknown]
  - Restlessness [Unknown]
  - Fatigue [Unknown]
  - Therapeutic response unexpected [Unknown]
